FAERS Safety Report 6235981-7 (Version None)
Quarter: 2009Q2

REPORT INFORMATION
  Report Type: 
  Country: None (occurrence: None)
  Receive Date: 20090617
  Receipt Date: 20090617
  Transmission Date: 20091009
  Serious: No
  Sender: FDA-Public Use
  Company Number: None

PATIENT
  Age: 17 Year
  Sex: Male
  Weight: 106.5953 kg

DRUGS (1)
  1. ZICAM COLD REMEDY NASAL GEL ZICAM [Suspect]
     Indication: RHINOVIRUS INFECTION
     Dosage: SINGLE APPLICATION TWICE DAILY NASAL
     Route: 045

REACTIONS (2)
  - OLFACTORY NERVE DISORDER [None]
  - PAROSMIA [None]
